FAERS Safety Report 7298262-9 (Version None)
Quarter: 2011Q1

REPORT INFORMATION
  Report Type: 
  Country: None (occurrence: None)
  Receive Date: 20110217
  Receipt Date: 20100317
  Transmission Date: 20110831
  Serious: No
  Sender: FDA-Public Use
  Company Number: US-PFIZER INC-2010034766

PATIENT
  Sex: Female

DRUGS (2)
  1. XALATAN [Suspect]
     Indication: GLAUCOMA
     Dosage: UNK
  2. INDOMETHACIN [Concomitant]
     Dosage: 50 MG, 2X/DAY

REACTIONS (2)
  - EYE BURNS [None]
  - OCULAR HYPERAEMIA [None]
